FAERS Safety Report 8900548 (Version 1)
Quarter: 2012Q4

REPORT INFORMATION
  Report Type: 
  Country: CH (occurrence: CH)
  Receive Date: 20121109
  Receipt Date: 20121109
  Transmission Date: 20130627
  Serious: Yes (Hospitalization, Other)
  Sender: FDA-Public Use
  Company Number: CH-ROCHE-1152447

PATIENT
  Age: 91 Year
  Sex: Female

DRUGS (7)
  1. LUCENTIS [Suspect]
     Indication: AGE-RELATED MACULAR DEGENERATION
     Route: 050
     Dates: start: 20120606
  2. LUCENTIS [Suspect]
     Route: 031
     Dates: start: 20120822
  3. MARCOUMAR [Concomitant]
     Route: 065
     Dates: end: 20120913
  4. DOXIUM [Concomitant]
  5. TORASEMIDE [Concomitant]
     Route: 065
  6. HYDROCHLOROTHIAZIDE/VALSARTAN [Concomitant]
  7. ZALDIAR [Concomitant]

REACTIONS (6)
  - Subdural haematoma [Not Recovered/Not Resolved]
  - Brain herniation [Unknown]
  - Hypertension [Unknown]
  - Fall [Recovered/Resolved with Sequelae]
  - Haemoglobin decreased [Unknown]
  - Platelet count decreased [Unknown]
